FAERS Safety Report 9793389 (Version 1)
Quarter: 2014Q1

REPORT INFORMATION
  Report Type: Spontaneous
  Country: NL (occurrence: NL)
  Receive Date: 20140102
  Receipt Date: 20140102
  Transmission Date: 20141002
  Serious: Yes (Other)
  Sender: FDA-Public Use
  Company Number: NL-TEVA-452980ISR

PATIENT
  Age: 65 Year
  Sex: Male

DRUGS (3)
  1. DICLOFENAC NATRIUM PCH TABLET MSR 50MG [Suspect]
     Dosage: 3 TIMES DAILY ONE PIECE
     Route: 048
     Dates: start: 20131213, end: 20131213
  2. CIPROFLOXACINE RP TABLET 500MG [Interacting]
     Dosage: TWICE DAILY ONE PIECE
     Route: 048
     Dates: start: 20131209
  3. SIMVASTATINE TEVA TABLET FILMOMHULD 40MG [Concomitant]
     Dosage: 1DD1
     Route: 048

REACTIONS (2)
  - Epilepsy [Recovered/Resolved]
  - Drug interaction [Recovered/Resolved]
